FAERS Safety Report 21746955 (Version 1)
Quarter: 2022Q4

REPORT INFORMATION
  Report Type: Spontaneous
  Country: US (occurrence: None)
  Receive Date: 20221216
  Receipt Date: 20221216
  Transmission Date: 20230112
  Serious: Yes (Life-Threatening, Hospitalization)
  Sender: FDA-Public Use
  Company Number: None

PATIENT
  Age: 85 Year
  Sex: Female
  Weight: 83 kg

DRUGS (1)
  1. HOMEOPATHICS [Suspect]
     Active Substance: HOMEOPATHICS
     Indication: Muscle spasms
     Dosage: OTHER FREQUENCY : Q4H PRN;?
     Route: 051
     Dates: start: 20221213, end: 20221213

REACTIONS (5)
  - Sinus node dysfunction [None]
  - Nausea [None]
  - Atrioventricular block complete [None]
  - Blood pressure decreased [None]
  - Acute kidney injury [None]

NARRATIVE: CASE EVENT DATE: 20221214
